FAERS Safety Report 11178683 (Version 1)
Quarter: 2015Q2

REPORT INFORMATION
  Report Type: Report from Study
  Country: KR (occurrence: KR)
  Receive Date: 20150610
  Receipt Date: 20150610
  Transmission Date: 20150821
  Serious: Yes (Hospitalization)
  Sender: FDA-Public Use
  Company Number: KR-EISAI MEDICAL RESEARCH-EC-2014-002702

PATIENT
  Age: 77 Year
  Sex: Female
  Weight: 43 kg

DRUGS (11)
  1. ROZATIN [Concomitant]
  2. HARNAL [Concomitant]
     Active Substance: TAMSULOSIN HYDROCHLORIDE
  3. AMLOSPINE [Concomitant]
  4. ATOREN [Concomitant]
  5. DIABEX [Concomitant]
     Active Substance: METFORMIN HYDROCHLORIDE
  6. EBIXA [Concomitant]
     Active Substance: MEMANTINE HYDROCHLORIDE
  7. CRAVIT [Concomitant]
     Active Substance: LEVOFLOXACIN
  8. ARICEPT [Suspect]
     Active Substance: DONEPEZIL HYDROCHLORIDE
     Indication: DEMENTIA ALZHEIMER^S TYPE
     Route: 048
     Dates: start: 20141015
  9. STILNOX [Concomitant]
     Active Substance: ZOLPIDEM TARTRATE
  10. DITROPAN [Concomitant]
     Active Substance: OXYBUTYNIN CHLORIDE
  11. TRESTAN [Concomitant]

REACTIONS (1)
  - Decreased appetite [Recovered/Resolved]

NARRATIVE: CASE EVENT DATE: 20141115
